FAERS Safety Report 8524284 (Version 3)
Quarter: 2012Q4

REPORT INFORMATION
  Report Type: 
  Country: US (occurrence: US)
  Receive Date: 20120420
  Receipt Date: 20121114
  Transmission Date: 20130627
  Serious: Yes (Other)
  Sender: FDA-Public Use
  Company Number: CHPA2012US005504

PATIENT
  Age: 31 Year
  Sex: Male
  Weight: 82.54 kg

DRUGS (2)
  1. EXCEDRIN MIGRAINE [Suspect]
     Indication: MIGRAINE
     Dosage: UNK, UNK
     Route: 048
     Dates: start: 201001, end: 201008
  2. PROBIOTICS [Concomitant]
     Dosage: Unk, Unk

REACTIONS (23)
  - Colitis [Unknown]
  - Nodule [Recovered/Resolved]
  - Abdominal pain [Unknown]
  - Haematochezia [Unknown]
  - Rectal haemorrhage [Unknown]
  - Blood urea increased [Recovered/Resolved]
  - Lymphocyte morphology abnormal [Recovered/Resolved]
  - Granulocytes abnormal [Unknown]
  - Specific gravity urine abnormal [Unknown]
  - Protein urine present [Unknown]
  - Blood urine present [Unknown]
  - Red blood cells urine [Unknown]
  - Urine analysis abnormal [Unknown]
  - Blood glucose increased [Unknown]
  - Pain [Not Recovered/Not Resolved]
  - Malaise [Recovered/Resolved]
  - Change of bowel habit [Unknown]
  - Constipation [Unknown]
  - Sensation of pressure [Unknown]
  - Fatigue [Unknown]
  - Abdominal distension [Unknown]
  - Decreased appetite [Unknown]
  - Nausea [Unknown]
